FAERS Safety Report 12598999 (Version 2)
Quarter: 2016Q3

REPORT INFORMATION
  Report Type: Spontaneous
  Country: US (occurrence: US)
  Receive Date: 20160727
  Receipt Date: 20160727
  Transmission Date: 20161109
  Serious: Yes (Hospitalization, Disabling, Other)
  Sender: FDA-Public Use
  Company Number: US-009507513-1103USA03953

PATIENT
  Sex: Female
  Weight: 70.31 kg

DRUGS (8)
  1. MK-9278 [Concomitant]
     Active Substance: VITAMINS
     Route: 065
  2. CALCIUM CITRATE (+) VITAMIN D (UNSPECIFIED) [Concomitant]
     Route: 065
  3. FOSAMAX [Suspect]
     Active Substance: ALENDRONATE SODIUM
     Indication: OSTEOPOROSIS
     Route: 048
     Dates: start: 1998, end: 200812
  4. FOSAMAX PLUS D [Suspect]
     Active Substance: ALENDRONATE SODIUM\CHOLECALCIFEROL
     Indication: OSTEOPOROSIS
     Dosage: 70 MG, QW
     Route: 048
     Dates: start: 2004, end: 2008
  5. FOSAMAX [Suspect]
     Active Substance: ALENDRONATE SODIUM
     Indication: OSTEOPOROSIS
     Dosage: 70 MG, QW
     Route: 048
     Dates: end: 200806
  6. FOSAMAX [Suspect]
     Active Substance: ALENDRONATE SODIUM
     Dosage: 10 MG, QD
     Route: 048
     Dates: start: 20000606, end: 20020909
  7. FOSAMAX [Suspect]
     Active Substance: ALENDRONATE SODIUM
     Dosage: 70 MG, QW
     Route: 048
     Dates: start: 20020909, end: 200812
  8. FOSAMAX [Suspect]
     Active Substance: ALENDRONATE SODIUM
     Dosage: 75 MG, QW
     Dates: start: 20080607

REACTIONS (83)
  - Emphysema [Unknown]
  - Metatarsalgia [Unknown]
  - Fibrin D dimer increased [Unknown]
  - Oesophageal stenosis [Unknown]
  - Nausea [Unknown]
  - Muscle strain [Unknown]
  - Muscle strain [Recovering/Resolving]
  - Tenderness [Unknown]
  - Tooth fracture [Unknown]
  - Blood creatinine increased [Unknown]
  - Anaemia of chronic disease [Unknown]
  - Back pain [Unknown]
  - Amnesia [Unknown]
  - Arthropathy [Unknown]
  - Hypothyroidism [Unknown]
  - Spinal osteoarthritis [Unknown]
  - Fibula fracture [Unknown]
  - Cataract [Unknown]
  - Foot fracture [Unknown]
  - Vomiting [Unknown]
  - Arthralgia [Recovering/Resolving]
  - Foot fracture [Unknown]
  - Hip fracture [Unknown]
  - Chronic kidney disease [Unknown]
  - Diverticulum intestinal [Not Recovered/Not Resolved]
  - Bursitis [Unknown]
  - Acetabulum fracture [Unknown]
  - Haemorrhoidal haemorrhage [Unknown]
  - Constipation [Unknown]
  - Arthralgia [Recovering/Resolving]
  - Gingival disorder [Unknown]
  - Hyperlipidaemia [Unknown]
  - Dyspnoea exertional [Unknown]
  - Body height decreased [Unknown]
  - Hiatus hernia [Unknown]
  - Acquired oesophageal web [Unknown]
  - Stasis dermatitis [Unknown]
  - Rotator cuff syndrome [Unknown]
  - Foot deformity [Unknown]
  - Spinal disorder [Not Recovered/Not Resolved]
  - Sensitivity of teeth [Unknown]
  - Swelling face [Unknown]
  - Polyarthritis [Unknown]
  - Hypergammaglobulinaemia benign monoclonal [Unknown]
  - Blood disorder [Unknown]
  - Hyperglycaemia [Unknown]
  - Gastrooesophageal reflux disease [Unknown]
  - Chronic obstructive pulmonary disease [Unknown]
  - Osteoarthritis [Unknown]
  - Hypertensive heart disease [Unknown]
  - Joint effusion [Unknown]
  - Foot deformity [Unknown]
  - Haemorrhagic anaemia [Unknown]
  - Hypokalaemia [Unknown]
  - Dizziness [Unknown]
  - Chronic kidney disease [Unknown]
  - Lumbar vertebral fracture [Unknown]
  - Fatigue [Unknown]
  - Varicose vein [Unknown]
  - Normochromic normocytic anaemia [Unknown]
  - Chest pain [Unknown]
  - Fall [Unknown]
  - Acute kidney injury [Recovering/Resolving]
  - Osteoarthritis [Unknown]
  - Gastrooesophageal reflux disease [Unknown]
  - Arthralgia [Unknown]
  - Fibrocystic breast disease [Unknown]
  - Chest discomfort [Unknown]
  - Malaise [Unknown]
  - Cataract [Unknown]
  - Incorrect dose administered [Unknown]
  - Dysphonia [Unknown]
  - Dyspnoea [Unknown]
  - Nephrogenic anaemia [Unknown]
  - Abscess oral [Unknown]
  - Dental caries [Unknown]
  - Femur fracture [Unknown]
  - Large intestine polyp [Unknown]
  - Renal failure [Unknown]
  - Hyponatraemia [Unknown]
  - Nephrolithiasis [Unknown]
  - Skin maceration [Unknown]
  - Skin papilloma [Unknown]

NARRATIVE: CASE EVENT DATE: 20000509
